FAERS Safety Report 23189320 (Version 1)
Quarter: 2023Q4

REPORT INFORMATION
  Report Type: Spontaneous
  Country: US (occurrence: US)
  Receive Date: 20231116
  Receipt Date: 20231116
  Transmission Date: 20240110
  Serious: No
  Sender: FDA-Public Use
  Company Number: US-BRISTOL-MYERS SQUIBB COMPANY-2023-164501

PATIENT
  Age: 79 Year
  Sex: Male

DRUGS (1)
  1. REVLIMID [Suspect]
     Active Substance: LENALIDOMIDE
     Indication: Plasma cell myeloma
     Dosage: DOSE: 10 MG; FREQUENCY: QUANTITY 21. TAKE ONE EVERY DAY FOR 21 DAYS OF A 28-DAY CYCLE
     Route: 048
     Dates: start: 20230508

REACTIONS (1)
  - COVID-19 [Recovered/Resolved]
